FAERS Safety Report 4554755-6 (Version None)
Quarter: 2005Q1

REPORT INFORMATION
  Report Type: 
  Country: None (occurrence: None)
  Receive Date: 20050118
  Receipt Date: 20040622
  Transmission Date: 20050727
  Serious: Yes (Hospitalization)
  Sender: FDA-Public Use
  Company Number: JP-GLAXOSMITHKLINE-B0336814A

PATIENT
  Age: 75 Year
  Sex: Female
  Weight: 29 kg

DRUGS (9)
  1. PAXIL [Suspect]
     Indication: DEPRESSION
     Dosage: 20MG PER DAY
     Route: 048
     Dates: start: 20040601, end: 20040604
  2. BENET [Suspect]
     Indication: SPINAL COMPRESSION FRACTURE
     Dosage: 1TAB PER DAY
     Route: 048
     Dates: start: 20040525
  3. LEXOTAN [Concomitant]
     Indication: DEPRESSION
     Route: 048
     Dates: start: 20040601, end: 20040605
  4. LENDORMIN [Concomitant]
     Indication: DEPRESSION
     Dosage: 1TAB PER DAY
     Route: 048
     Dates: start: 20040601, end: 20040701
  5. CYANOCOBALAMIN [Concomitant]
     Indication: CEREBRAL INFARCTION
     Dosage: 3TAB PER DAY
     Route: 048
     Dates: start: 20040303
  6. PREDONINE [Concomitant]
     Indication: RHEUMATOID ARTHRITIS
     Dosage: 2.5MG PER DAY
     Route: 048
  7. MEILAX [Concomitant]
     Indication: INSOMNIA
     Dosage: 1MG PER DAY
     Route: 048
     Dates: start: 20040610, end: 20040701
  8. NEUER [Concomitant]
     Indication: CEREBRAL INFARCTION
     Dosage: 1CAP PER DAY
     Route: 048
     Dates: start: 20030827, end: 20040622
  9. JUVELA N [Concomitant]
     Indication: CEREBRAL INFARCTION
     Dosage: 3CAP PER DAY
     Route: 048
     Dates: start: 20040303

REACTIONS (11)
  - ABNORMAL BEHAVIOUR [None]
  - BLOOD SODIUM DECREASED [None]
  - DEPRESSION [None]
  - DYSKINESIA [None]
  - HEADACHE [None]
  - INAPPROPRIATE ANTIDIURETIC HORMONE SECRETION [None]
  - MALAISE [None]
  - MUTISM [None]
  - NAUSEA [None]
  - SOMNOLENCE [None]
  - TACHYCARDIA [None]
